FAERS Safety Report 18171002 (Version 3)
Quarter: 2020Q4

REPORT INFORMATION
  Report Type: Spontaneous
  Country: US (occurrence: US)
  Receive Date: 20200819
  Receipt Date: 20201008
  Transmission Date: 20210113
  Serious: Yes (Other)
  Sender: FDA-Public Use
  Company Number: US-GILEAD-2020-0489925

PATIENT
  Age: 27 Year
  Sex: Male
  Weight: 97.51 kg

DRUGS (40)
  1. EPIVIR [Concomitant]
     Active Substance: LAMIVUDINE
  2. AUGMENTIN S [Concomitant]
  3. ETHAMBUTOL [Concomitant]
     Active Substance: ETHAMBUTOL HYDROCHLORIDE
  4. INTELENCE [Concomitant]
     Active Substance: ETRAVIRINE
  5. LAMIVUDINE. [Concomitant]
     Active Substance: LAMIVUDINE
  6. MORPHINE SULFATE. [Concomitant]
     Active Substance: MORPHINE SULFATE
  7. ACYCLOVIR ABBOTT VIAL [Concomitant]
  8. ALLEGRA-D [Concomitant]
     Active Substance: FEXOFENADINE\PSEUDOEPHEDRINE
  9. CLINDAMYCIN. [Concomitant]
     Active Substance: CLINDAMYCIN
  10. DAPSONE. [Concomitant]
     Active Substance: DAPSONE
  11. ATRIPLA [Suspect]
     Active Substance: EFAVIRENZ\EMTRICITABINE\TENOFOVIR DISOPROXIL FUMARATE
     Indication: HIV INFECTION
     Dosage: UNK
     Route: 048
     Dates: start: 2008, end: 2010
  12. AMLODIPINE [Concomitant]
     Active Substance: AMLODIPINE BESYLATE
  13. DOXYCYCLINE HYCLATE. [Concomitant]
     Active Substance: DOXYCYCLINE HYCLATE
  14. FEXOFENADINE [Concomitant]
     Active Substance: FEXOFENADINE HYDROCHLORIDE
  15. PREZCOBIX [Concomitant]
     Active Substance: COBICISTAT\DARUNAVIR ETHANOLATE
  16. TRIAMCINOLONE [Concomitant]
     Active Substance: TRIAMCINOLONE
  17. ZOFRAN ODT [Concomitant]
     Active Substance: ONDANSETRON HYDROCHLORIDE
  18. BIKTARVY [Concomitant]
     Active Substance: BICTEGRAVIR SODIUM\EMTRICITABINE\TENOFOVIR ALAFENAMIDE FUMARATE
  19. CYCLOBENZAPRINE. [Concomitant]
     Active Substance: CYCLOBENZAPRINE
  20. DIPRIVAN [Concomitant]
     Active Substance: PROPOFOL
  21. DOLUTEGRAVIR SODIUM [Concomitant]
     Active Substance: DOLUTEGRAVIR SODIUM
  22. OMEPRAZOLE. [Concomitant]
     Active Substance: OMEPRAZOLE
  23. PREZISTA [Concomitant]
     Active Substance: DARUNAVIR ETHANOLATE
  24. TIVICAY [Concomitant]
     Active Substance: DOLUTEGRAVIR SODIUM
  25. DARUNAVIR ETHANOLATE. [Concomitant]
     Active Substance: DARUNAVIR ETHANOLATE
  26. ALINIA [Concomitant]
     Active Substance: NITAZOXANIDE
  27. AMOXICILLIN. [Concomitant]
     Active Substance: AMOXICILLIN
  28. AZITHROMYCIN ANHYDROUS. [Concomitant]
     Active Substance: AZITHROMYCIN ANHYDROUS
  29. NAPROXEN. [Concomitant]
     Active Substance: NAPROXEN
  30. NORVASC [Concomitant]
     Active Substance: AMLODIPINE BESYLATE
  31. TRUVADA [Suspect]
     Active Substance: EMTRICITABINE\TENOFOVIR DISOPROXIL FUMARATE
     Indication: HIV INFECTION
     Dosage: UNK
     Route: 048
     Dates: start: 2009, end: 201810
  32. NORCO [Concomitant]
     Active Substance: ACETAMINOPHEN\HYDROCODONE BITARTRATE
  33. ULTRAM ER [Concomitant]
     Active Substance: TRAMADOL HYDROCHLORIDE
  34. VIREAD [Suspect]
     Active Substance: TENOFOVIR DISOPROXIL FUMARATE
     Indication: HIV INFECTION
     Dosage: UNK
     Route: 048
     Dates: start: 2009, end: 2015
  35. STRIBILD [Suspect]
     Active Substance: COBICISTAT\ELVITEGRAVIR\EMTRICITABINE\TENOFOVIR DISOPROXIL FUMARATE
     Indication: HIV INFECTION
     Dosage: UNK
     Route: 048
     Dates: start: 2009, end: 20131214
  36. TRIUMEQ [Concomitant]
     Active Substance: ABACAVIR SULFATE\DOLUTEGRAVIR SODIUM\LAMIVUDINE
  37. FLUCONAZOLE. [Concomitant]
     Active Substance: FLUCONAZOLE
  38. LOPERAMIDE [Concomitant]
     Active Substance: LOPERAMIDE
  39. MELATONIN [Concomitant]
     Active Substance: MELATONIN
  40. SULFAMETHOXAZOLE [Concomitant]
     Active Substance: SULFAMETHOXAZOLE

REACTIONS (9)
  - Drug resistance [Recovered/Resolved]
  - Foot fracture [Recovered/Resolved]
  - Anhedonia [Unknown]
  - Anxiety [Unknown]
  - Renal impairment [Not Recovered/Not Resolved]
  - Hand fracture [Recovered/Resolved]
  - Renal failure [Unknown]
  - Emotional distress [Unknown]
  - Pain [Unknown]

NARRATIVE: CASE EVENT DATE: 201402
